FAERS Safety Report 9950395 (Version 1)
Quarter: 2014Q1

REPORT INFORMATION
  Report Type: Report from Study
  Country: US (occurrence: US)
  Receive Date: 20140304
  Receipt Date: 20140304
  Transmission Date: 20141002
  Serious: No
  Sender: FDA-Public Use
  Company Number: US-ABBVIE-13P-163-1072420-00

PATIENT
  Age: 57 Year
  Sex: Female

DRUGS (11)
  1. HUMIRA [Suspect]
     Indication: RHEUMATOID ARTHRITIS
     Route: 058
     Dates: start: 201210
  2. EXFORGE [Concomitant]
     Indication: BLOOD PRESSURE
     Dosage: 10/320/25MG DAILY
  3. FOLIC ACID [Concomitant]
     Indication: RHEUMATOID ARTHRITIS
  4. PROZAC [Concomitant]
     Indication: DEPRESSION
  5. TIZANIDINE [Concomitant]
     Indication: MUSCLE RELAXANT THERAPY
     Dosage: AS NEEDED
  6. MONTELUKAST [Concomitant]
     Indication: PRODUCT USED FOR UNKNOWN INDICATION
  7. KLOR-CON [Concomitant]
     Indication: PRODUCT USED FOR UNKNOWN INDICATION
  8. DALIRESP [Concomitant]
     Indication: COUGH
  9. OMEPRAZOLE [Concomitant]
     Indication: GASTROOESOPHAGEAL REFLUX DISEASE
  10. CYMBALTA [Concomitant]
     Indication: PAIN
  11. LORTAB [Concomitant]
     Indication: PAIN
     Dosage: AS NEEDED

REACTIONS (6)
  - Pain [Recovering/Resolving]
  - Gait disturbance [Recovering/Resolving]
  - Swelling [Recovering/Resolving]
  - Movement disorder [Recovering/Resolving]
  - Vomiting [Recovering/Resolving]
  - Heart rate increased [Recovering/Resolving]
